FAERS Safety Report 17661800 (Version 9)
Quarter: 2021Q1

REPORT INFORMATION
  Report Type: Spontaneous
  Country: US (occurrence: US)
  Receive Date: 20200413
  Receipt Date: 20210330
  Transmission Date: 20210419
  Serious: Yes (Hospitalization, Other)
  Sender: FDA-Public Use
  Company Number: US-GLAXOSMITHKLINE-US2020GSK063158

PATIENT
  Sex: Female

DRUGS (4)
  1. LAMOTRIGINE. [Suspect]
     Active Substance: LAMOTRIGINE
     Indication: DEPRESSION
     Dosage: 25 MG, QD
     Route: 065
  2. LAMOTRIGINE. [Suspect]
     Active Substance: LAMOTRIGINE
     Dosage: 50 MG, QD
     Route: 065
  3. LAMICTAL [Suspect]
     Active Substance: LAMOTRIGINE
     Dosage: 50 MG, QD
     Route: 065
  4. LAMICTAL [Suspect]
     Active Substance: LAMOTRIGINE
     Indication: DEPRESSION
     Dosage: 25 MG, BID
     Route: 048

REACTIONS (57)
  - Rash [Unknown]
  - Urinary tract infection staphylococcal [Unknown]
  - Urinary retention [Unknown]
  - Vulvovaginal swelling [Unknown]
  - Oropharyngeal pain [Unknown]
  - Lip blister [Unknown]
  - Skin infection [Unknown]
  - Dry skin [Unknown]
  - Myopia [Unknown]
  - Visual impairment [Unknown]
  - Lip haemorrhage [Unknown]
  - Swelling of eyelid [Unknown]
  - Pruritus [Unknown]
  - Chalazion [Unknown]
  - Eyelid ptosis [Unknown]
  - Auricular swelling [Unknown]
  - Lip oedema [Unknown]
  - Lip exfoliation [Unknown]
  - Eyelid margin crusting [Unknown]
  - Dry eye [Unknown]
  - Erythema [Unknown]
  - Conjunctival hyperaemia [Unknown]
  - Mouth ulceration [Unknown]
  - Pharyngeal erythema [Unknown]
  - Mucocutaneous rash [Unknown]
  - Conjunctivitis [Unknown]
  - Eye swelling [Unknown]
  - Rash maculo-papular [Unknown]
  - Skin lesion [Unknown]
  - Rash papular [Unknown]
  - Staphylococcal infection [Unknown]
  - Lip swelling [Unknown]
  - Rhabdomyolysis [Unknown]
  - Swelling face [Unknown]
  - Lip dry [Unknown]
  - Mucosal dryness [Unknown]
  - Dermatitis atopic [Unknown]
  - Purulent discharge [Unknown]
  - Meibomian gland dysfunction [Unknown]
  - Gastrointestinal haemorrhage [Unknown]
  - Skin exfoliation [Unknown]
  - Ocular hyperaemia [Unknown]
  - Lip pain [Unknown]
  - Oral pain [Unknown]
  - Eye discharge [Unknown]
  - Eczema [Unknown]
  - Eye irritation [Unknown]
  - Stevens-Johnson syndrome [Unknown]
  - Toxic epidermal necrolysis [Unknown]
  - Blister [Unknown]
  - Pyrexia [Unknown]
  - Scar [Unknown]
  - Mucosal inflammation [Unknown]
  - Eye pain [Unknown]
  - Eye pruritus [Unknown]
  - Chapped lips [Unknown]
  - Vision blurred [Unknown]
